FAERS Safety Report 17649473 (Version 1)
Quarter: 2020Q2

REPORT INFORMATION
  Report Type: Spontaneous
  Country: US (occurrence: US)
  Receive Date: 20200409
  Receipt Date: 20200409
  Transmission Date: 20200713
  Serious: No
  Sender: FDA-Public Use
  Company Number: US-MYLANLABS-2020M1033226

PATIENT
  Age: 44 Year
  Sex: Female
  Weight: 75 kg

DRUGS (1)
  1. ESTRADIOL TRANSDERMAL SYSTEM [Suspect]
     Active Substance: ESTRADIOL
     Indication: PRODUCT USED FOR UNKNOWN INDICATION
     Dosage: TWICE A WEEK
     Route: 062

REACTIONS (7)
  - Product adhesion issue [Unknown]
  - Application site erythema [Not Recovered/Not Resolved]
  - Rash [Not Recovered/Not Resolved]
  - Product residue present [Not Recovered/Not Resolved]
  - Recalled product administered [Not Recovered/Not Resolved]
  - Application site pruritus [Not Recovered/Not Resolved]
  - Application site pain [Not Recovered/Not Resolved]

NARRATIVE: CASE EVENT DATE: 20200320
